FAERS Safety Report 19434270 (Version 1)
Quarter: 2021Q2

REPORT INFORMATION
  Report Type: Spontaneous
  Country: US (occurrence: US)
  Receive Date: 20210617
  Receipt Date: 20210617
  Transmission Date: 20210717
  Serious: No
  Sender: FDA-Public Use
  Company Number: US-ROCHE-2612797

PATIENT
  Sex: Female

DRUGS (1)
  1. ACTEMRA [Suspect]
     Active Substance: TOCILIZUMAB
     Indication: ARTHRALGIA
     Dosage: ACTEMRA PFS 162 MG 0.9 ML SQ?INJECT 162 MG (1 SYRINGE) SUBCUTANEOUSLY EVERY OTHER WEEK
     Route: 058
     Dates: start: 20190201

REACTIONS (1)
  - Acne [Not Recovered/Not Resolved]
